FAERS Safety Report 8872637 (Version 1)
Quarter: 2012Q4

REPORT INFORMATION
  Report Type: Spontaneous
  Country: US (occurrence: None)
  Receive Date: 20121031
  Receipt Date: 20121031
  Transmission Date: 20130627
  Serious: Yes (Hospitalization)
  Sender: FDA-Public Use
  Company Number: None

PATIENT
  Age: 87 Year
  Sex: Male
  Weight: 97.52 kg

DRUGS (1)
  1. LIDOCAINE/BIPUVICAINE 2CC/2CC [Suspect]
     Indication: EYE OPERATION
     Route: 031
     Dates: start: 20120613, end: 20120613

REACTIONS (5)
  - Convulsion [None]
  - Weight decreased [None]
  - Confusional state [None]
  - Speech disorder [None]
  - Gait disturbance [None]
